FAERS Safety Report 5135629-9 (Version None)
Quarter: 2006Q4

REPORT INFORMATION
  Report Type: 
  Country: None (occurrence: None)
  Receive Date: 20061026
  Receipt Date: 20060206
  Transmission Date: 20070319
  Serious: Yes (Death, Life-Threatening)
  Sender: FDA-Public Use
  Company Number: JP-SANOFI-SYNTHELABO-F01200600320

PATIENT
  Age: 58 Year
  Sex: Male
  Weight: 55 kg

DRUGS (18)
  1. CALCIUM LEVOFOLINATE [Suspect]
     Route: 042
     Dates: start: 20051114, end: 20051115
  2. FLUOROURACIL [Suspect]
     Dosage: 600MG/BODY=387.1MG/M2 IN BOLUS THEN 900MG/BODY=580.7MG/M2 AS CONTINUOUS INFUSION ON DAYS 1 AND 2
     Route: 042
     Dates: start: 20051114, end: 20051115
  3. OXALIPLATIN [Suspect]
     Indication: COLON CANCER
     Route: 042
     Dates: start: 20051114, end: 20051114
  4. FAMOTIDINE [Concomitant]
     Indication: GASTROINTESTINAL HAEMORRHAGE
     Dosage: 1DF
     Route: 042
     Dates: start: 20051208, end: 20051215
  5. DORMICUM [Concomitant]
     Indication: SEDATION
     Dosage: DR
     Dates: start: 20051207, end: 20051214
  6. SANDOSTATIN [Concomitant]
     Indication: ILEUS
     Dosage: 100 MICROG
     Route: 058
     Dates: start: 20051129, end: 20051205
  7. PROTON PUMP INHIBITOR [Concomitant]
     Indication: GASTROINTESTINAL HAEMORRHAGE
     Route: 042
     Dates: start: 20051126, end: 20051207
  8. MORPHINE [Concomitant]
     Indication: PAIN
     Dosage: DR
     Dates: start: 20051125, end: 20051130
  9. MORPHINE [Concomitant]
     Dosage: DR
     Dates: start: 20051201, end: 20051204
  10. MORPHINE [Concomitant]
     Dosage: DR
     Dates: start: 20051205, end: 20051210
  11. MORPHINE [Concomitant]
     Dosage: DR
     Dates: start: 20051211, end: 20051211
  12. MORPHINE [Concomitant]
     Dosage: DR
     Dates: start: 20051212, end: 20051216
  13. MORPHINE [Concomitant]
     Dosage: DR
     Dates: start: 20051217, end: 20051217
  14. FOY [Concomitant]
     Indication: PROPHYLAXIS
     Dosage: DR
     Dates: start: 20051125, end: 20051202
  15. ALBUMIN (HUMAN) [Concomitant]
     Indication: BLOOD ALBUMIN DECREASED
     Dosage: DR
     Dates: start: 20051124, end: 20051210
  16. MEROPEN [Concomitant]
     Indication: INFECTION
     Dosage: DR
     Dates: start: 20051124, end: 20051130
  17. LEPETAN [Concomitant]
     Indication: ABDOMINAL PAIN
     Dosage: 1DF
     Route: 030
     Dates: start: 20051114, end: 20051114
  18. DOPAMINE HCL [Concomitant]
     Dosage: DR
     Dates: start: 20051217, end: 20051217

REACTIONS (9)
  - BLOOD PRESSURE DECREASED [None]
  - CARDIAC ARREST [None]
  - DISEASE PROGRESSION [None]
  - INTESTINAL PERFORATION [None]
  - LEUKOPENIA [None]
  - NEUTROPENIA [None]
  - PERITONITIS [None]
  - SEPSIS [None]
  - THROMBOCYTOPENIA [None]
